FAERS Safety Report 4302758-9 (Version None)
Quarter: 2004Q1

REPORT INFORMATION
  Report Type: 
  Country: None (occurrence: None)
  Receive Date: 20040224
  Receipt Date: 20030422
  Transmission Date: 20041129
  Serious: No
  Sender: FDA-Public Use
  Company Number: US-BRISTOL-MYERS SQUIBB COMPANY-12250155

PATIENT
  Age: 2 Year
  Sex: Female

DRUGS (1)
  1. KENALOG [Suspect]
     Route: 030
     Dates: start: 20021019, end: 20021019

REACTIONS (3)
  - INJECTION SITE ATROPHY [None]
  - INJECTION SITE DISCOLOURATION [None]
  - MUSCLE ATROPHY [None]
